FAERS Safety Report 6400953-6 (Version None)
Quarter: 2009Q4

REPORT INFORMATION
  Report Type: 
  Country: None (occurrence: None)
  Receive Date: 20091015
  Receipt Date: 20071221
  Transmission Date: 20100525
  Serious: Yes (Death, Other)
  Sender: FDA-Public Use
  Company Number: US-ASTRAZENECA-2007UW21749

PATIENT
  Age: 23737 Day
  Sex: Male

DRUGS (11)
  1. SEROQUEL [Suspect]
     Indication: SLEEP DISORDER
     Route: 048
     Dates: start: 20020601, end: 20060902
  2. SEROQUEL [Suspect]
     Route: 048
     Dates: start: 20020819
  3. NIFEDIPINE [Concomitant]
     Dates: start: 20020104
  4. CARBIDOPA/LEVODO [Concomitant]
     Dosage: STRENGTH-25/10-25/100
     Dates: start: 20020819
  5. FLOMAX [Concomitant]
     Dates: start: 20020819
  6. DOXAZOSIN MESYLATE [Concomitant]
     Dates: start: 20020918
  7. FUROSEMIDE [Concomitant]
     Dosage: STRENGTH-20MG, 40MG
     Dates: start: 20040319
  8. ENALAPRIL MALEATE [Concomitant]
     Dates: start: 20021007
  9. PLAVIX [Concomitant]
     Dates: start: 20050630
  10. SPIRONOLACTONE [Concomitant]
     Dates: start: 20050912
  11. FOSINOPRIL SOD [Concomitant]
     Dates: start: 20040409

REACTIONS (2)
  - DEATH [None]
  - PANCREATITIS CHRONIC [None]
